FAERS Safety Report 8176988-2 (Version None)
Quarter: 2012Q1

REPORT INFORMATION
  Report Type: 
  Country: None (occurrence: None)
  Receive Date: 20120301
  Receipt Date: 20120223
  Transmission Date: 20120608
  Serious: Yes (Other)
  Sender: FDA-Public Use
  Company Number: US-ABBOTT-12P-163-0908554-00

PATIENT
  Sex: Male
  Weight: 83.99 kg

DRUGS (2)
  1. HUMIRA [Suspect]
     Indication: JUVENILE ARTHRITIS
     Dates: start: 20100101
  2. UNNAMED EYE DROPS [Concomitant]
     Indication: UVEITIS

REACTIONS (10)
  - DENTAL CARIES [None]
  - DERMATITIS [None]
  - NASAL CONGESTION [None]
  - SWELLING FACE [None]
  - NASAL DISORDER [None]
  - TOOTH INFECTION [None]
  - RASH [None]
  - NASAL INFLAMMATION [None]
  - HANGNAIL [None]
  - NAIL INFECTION [None]
